FAERS Safety Report 5426219-9 (Version None)
Quarter: 2007Q3

REPORT INFORMATION
  Report Type: 
  Country: None (occurrence: None)
  Receive Date: 20070827
  Receipt Date: 20070816
  Transmission Date: 20080115
  Serious: Yes (Hospitalization)
  Sender: FDA-Public Use
  Company Number: BR-ROCHE-512156

PATIENT
  Age: 42 Year
  Sex: Female
  Weight: 65 kg

DRUGS (4)
  1. CLONAZEPAM [Suspect]
     Indication: SEDATIVE THERAPY
     Route: 048
     Dates: start: 20061001, end: 20070501
  2. CLONAZEPAM [Suspect]
     Route: 048
     Dates: start: 20070501, end: 20070101
  3. CLONAZEPAM [Suspect]
     Route: 048
     Dates: start: 20070101
  4. CITALOPRAM [Concomitant]
     Indication: DEPRESSION
     Route: 048

REACTIONS (4)
  - DRUG WITHDRAWAL SYNDROME [None]
  - HALLUCINATION, AUDITORY [None]
  - HEADACHE [None]
  - HYPERTENSION [None]
